FAERS Safety Report 6714197-1 (Version None)
Quarter: 2010Q2

REPORT INFORMATION
  Report Type: 
  Country: None (occurrence: None)
  Receive Date: 20100506
  Receipt Date: 20100426
  Transmission Date: 20101027
  Serious: Yes (Hospitalization)
  Sender: FDA-Public Use
  Company Number: FR-BAXTER-2010BH011493

PATIENT
  Age: 19 Year
  Sex: Female

DRUGS (3)
  1. ENDOXAN BAXTER [Suspect]
     Indication: ACUTE LYMPHOCYTIC LEUKAEMIA
     Route: 042
     Dates: start: 20091231, end: 20091231
  2. CYTARABINE [Suspect]
     Indication: ACUTE LYMPHOCYTIC LEUKAEMIA
     Route: 058
     Dates: start: 20091231, end: 20100108
  3. PRIMPERAN TAB [Concomitant]
     Indication: DRUG USE FOR UNKNOWN INDICATION
     Route: 042
     Dates: start: 20091231

REACTIONS (6)
  - CELLULITIS [None]
  - ESCHERICHIA BACTERAEMIA [None]
  - LIVER DISORDER [None]
  - LUNG DISORDER [None]
  - PANCYTOPENIA [None]
  - PYREXIA [None]
